FAERS Safety Report 6123879-4 (Version None)
Quarter: 2009Q1

REPORT INFORMATION
  Report Type: 
  Country: None (occurrence: None)
  Receive Date: 20090319
  Receipt Date: 20090312
  Transmission Date: 20090719
  Serious: Yes (Other)
  Sender: FDA-Public Use
  Company Number: US-BIOGENIDEC-2009BI000132

PATIENT
  Age: 53 Year
  Sex: Female

DRUGS (1)
  1. TYSABRI [Suspect]
     Indication: MULTIPLE SCLEROSIS
     Route: 042
     Dates: start: 20081210

REACTIONS (4)
  - AXILLARY VEIN THROMBOSIS [None]
  - MONOPARESIS [None]
  - SUBCLAVIAN VEIN THROMBOSIS [None]
  - VENOUS THROMBOSIS [None]
